FAERS Safety Report 10450433 (Version 2)
Quarter: 2014Q3

REPORT INFORMATION
  Report Type: Spontaneous
  Country: US (occurrence: US)
  Receive Date: 20140912
  Receipt Date: 20140912
  Transmission Date: 20150326
  Serious: No
  Sender: FDA-Public Use
  Company Number: US-PFIZER INC-2014248776

PATIENT
  Sex: Female

DRUGS (2)
  1. BRISDELLE [Suspect]
     Active Substance: PAROXETINE MESYLATE
     Dosage: UNK
  2. EFFEXOR XR [Suspect]
     Active Substance: VENLAFAXINE HYDROCHLORIDE
     Dosage: UNK

REACTIONS (2)
  - Hot flush [Unknown]
  - Acne [Unknown]
